FAERS Safety Report 4727274-1 (Version None)
Quarter: 2005Q3

REPORT INFORMATION
  Report Type: 
  Country: None (occurrence: None)
  Receive Date: 20050728
  Receipt Date: 20050725
  Transmission Date: 20060218
  Serious: Yes (Congenital Anomaly)
  Sender: FDA-Public Use
  Company Number: DE-GLAXOSMITHKLINE-D0047172A

PATIENT
  Sex: Male

DRUGS (1)
  1. AVODART [Suspect]

REACTIONS (3)
  - CONGENITAL GENITAL MALFORMATION MALE [None]
  - DRUG EXPOSURE DURING PREGNANCY [None]
  - TRANSMISSION OF DRUG VIA SEMEN [None]
